FAERS Safety Report 10244967 (Version 1)
Quarter: 2014Q2

REPORT INFORMATION
  Report Type: Spontaneous
  Country: JP (occurrence: JP)
  Receive Date: 20140618
  Receipt Date: 20140618
  Transmission Date: 20141212
  Serious: Yes (Death)
  Sender: FDA-Public Use
  Company Number: JP-WATSON-2014-13599

PATIENT
  Sex: Male
  Weight: 1.69 kg

DRUGS (3)
  1. INDOMETACIN [Suspect]
     Indication: TOCOLYSIS
     Dosage: 50 MG, Q8H
     Route: 064
  2. RITODRINE [Concomitant]
     Indication: TOCOLYSIS
     Dosage: UNK
     Route: 062
  3. MAGNESIUM SULPHATE                 /07507001/ [Concomitant]
     Indication: TOCOLYSIS
     Dosage: UNK
     Route: 065

REACTIONS (8)
  - Pulmonary thrombosis [Fatal]
  - Ductus arteriosus premature closure [Fatal]
  - Right ventricular failure [Fatal]
  - Right ventricular hypertrophy [Fatal]
  - Neonatal hypoxia [Fatal]
  - Metabolic acidosis [Fatal]
  - Tricuspid valve incompetence [Fatal]
  - Foetal exposure during pregnancy [Fatal]
